FAERS Safety Report 7464615-9 (Version None)
Quarter: 2011Q2

REPORT INFORMATION
  Report Type: 
  Country: None (occurrence: None)
  Receive Date: 20110509
  Receipt Date: 20110322
  Transmission Date: 20111010
  Serious: Yes (Hospitalization, Other)
  Sender: FDA-Public Use
  Company Number: US-BAYER-201041755NA

PATIENT
  Age: 32 Year
  Sex: Female
  Weight: 61 kg

DRUGS (3)
  1. YASMIN [Suspect]
     Indication: ACNE
     Dosage: UNK
     Dates: start: 20051101, end: 20090101
  2. YASMIN [Suspect]
     Indication: DYSMENORRHOEA
     Dosage: UNK UNK, UNK
     Route: 048
     Dates: start: 20050601, end: 20050801
  3. YASMIN [Suspect]
     Indication: MENSTRUAL DISORDER

REACTIONS (13)
  - CEREBROVASCULAR ACCIDENT [None]
  - PAIN [None]
  - CONVULSION [None]
  - DEPRESSION [None]
  - ANXIETY [None]
  - MUSCULAR WEAKNESS [None]
  - STRESS [None]
  - PERONEAL NERVE PALSY [None]
  - FATIGUE [None]
  - DIPLEGIA [None]
  - NEURALGIA [None]
  - PAIN IN EXTREMITY [None]
  - NEUROPATHY PERIPHERAL [None]
